FAERS Safety Report 20988499 (Version 1)
Quarter: 2022Q2

REPORT INFORMATION
  Report Type: Spontaneous
  Country: IT (occurrence: IT)
  Receive Date: 20220621
  Receipt Date: 20220621
  Transmission Date: 20220721
  Serious: Yes (Hospitalization, Other)
  Sender: FDA-Public Use
  Company Number: IT-JAZZ-2022-IT-020142

PATIENT
  Age: 73 Year
  Sex: Male

DRUGS (2)
  1. VYXEOS [Suspect]
     Active Substance: CYTARABINE\DAUNORUBICIN
     Indication: Leukaemia
     Dosage: FIRST INDUCTION COURSE
     Dates: start: 202205
  2. VYXEOS [Suspect]
     Active Substance: CYTARABINE\DAUNORUBICIN
     Indication: Acute myeloid leukaemia

REACTIONS (3)
  - Coma [Unknown]
  - Transient ischaemic attack [Unknown]
  - Dysarthria [Unknown]

NARRATIVE: CASE EVENT DATE: 20220601
